FAERS Safety Report 6091489-3 (Version None)
Quarter: 2009Q1

REPORT INFORMATION
  Report Type: 
  Country: None (occurrence: None)
  Receive Date: 20090225
  Receipt Date: 20090218
  Transmission Date: 20090719
  Serious: Yes (Other)
  Sender: FDA-Public Use
  Company Number: US-BAYER-200839199NA

PATIENT
  Sex: Female
  Weight: 70 kg

DRUGS (1)
  1. MIRENA [Suspect]
     Indication: CONTRACEPTION
     Route: 015
     Dates: start: 20080905, end: 20081104

REACTIONS (3)
  - ECTOPIC PREGNANCY WITH INTRAUTERINE DEVICE [None]
  - UTERINE PAIN [None]
  - UTERINE RUPTURE [None]
